FAERS Safety Report 20946581 (Version 2)
Quarter: 2022Q3

REPORT INFORMATION
  Report Type: Report from Study
  Country: BR (occurrence: BR)
  Receive Date: 20220610
  Receipt Date: 20220712
  Transmission Date: 20221027
  Serious: Yes (Other)
  Sender: FDA-Public Use
  Company Number: BR-JNJFOC-20220340466

PATIENT
  Age: 27 Year
  Sex: Male
  Weight: 85 kg

DRUGS (3)
  1. SIMPONI [Suspect]
     Active Substance: GOLIMUMAB
     Indication: Ankylosing spondylitis
     Route: 058
     Dates: end: 20220217
  2. SIMPONI [Suspect]
     Active Substance: GOLIMUMAB
     Indication: Colitis
  3. PREDNISONE [Suspect]
     Active Substance: PREDNISONE
     Indication: Product used for unknown indication
     Route: 065

REACTIONS (2)
  - Haematochezia [Unknown]
  - Drug ineffective [Unknown]
